FAERS Safety Report 23929360 (Version 1)
Quarter: 2024Q2

REPORT INFORMATION
  Report Type: Spontaneous
  Country: US (occurrence: US)
  Receive Date: 20240601
  Receipt Date: 20240601
  Transmission Date: 20240716
  Serious: No
  Sender: FDA-Public Use
  Company Number: US-RADIUS HEALTH INC.-2024US002249

PATIENT
  Sex: Female
  Weight: 60.771 kg

DRUGS (2)
  1. TYMLOS [Suspect]
     Active Substance: ABALOPARATIDE
     Indication: Osteoporotic fracture
     Dosage: 80 MCG, DAILY
     Route: 058
     Dates: start: 202212
  2. TYMLOS [Suspect]
     Active Substance: ABALOPARATIDE
     Indication: Osteogenesis imperfecta

REACTIONS (2)
  - Pyrexia [Recovered/Resolved]
  - Erythema [Not Recovered/Not Resolved]
